FAERS Safety Report 8909258 (Version 2)
Quarter: 2013Q1

REPORT INFORMATION
  Report Type: Spontaneous
  Country: US (occurrence: None)
  Receive Date: 20121107
  Receipt Date: 20130122
  Transmission Date: 20140127
  Serious: Yes (Death, Hospitalization)
  Sender: FDA-Public Use
  Company Number: 2012-1200

PATIENT
  Age: 65 Year
  Sex: Female

DRUGS (1)
  1. KYPROLIS [Suspect]
     Indication: PLASMA CELL MYELOMA
     Dates: start: 20120924, end: 20120925

REACTIONS (5)
  - Myocardial infarction [None]
  - No therapeutic response [None]
  - Malignant pleural effusion [None]
  - General physical health deterioration [None]
  - Respiratory failure [None]
